FAERS Safety Report 8597467-4 (Version None)
Quarter: 2012Q3

REPORT INFORMATION
  Report Type: 
  Country: None (occurrence: None)
  Receive Date: 20120816
  Receipt Date: 20120711
  Transmission Date: 20120928
  Serious: No
  Sender: FDA-Public Use
  Company Number: US-BAYER-2012-075023

PATIENT
  Age: 46 Year
  Sex: Female
  Weight: 68.934 kg

DRUGS (9)
  1. EFFEXOR XR [Suspect]
     Indication: DEPRESSION
     Dosage: UNK
  2. CHLORTHALIDONE [Concomitant]
     Indication: HYPERTENSION
     Dosage: 25 MG, QD
  3. FLEXERIL [Concomitant]
     Indication: MUSCLE SPASMS
  4. GEMFIBROZIL [Concomitant]
     Indication: BLOOD CHOLESTEROL ABNORMAL
  5. NAPROXEN SODIUM [Suspect]
     Indication: ARTHRITIS
  6. NORCO [Concomitant]
     Dosage: DAILY DOSE 10/325MG
  7. NEURONTIN [Concomitant]
  8. CLONAZEPAM [Suspect]
     Dosage: DAILY DOSE 3MG
  9. DILTIAZEM [Concomitant]
     Dosage: 180 MG, QD
     Route: 048

REACTIONS (12)
  - EPISTAXIS [None]
  - PANIC REACTION [None]
  - HYSTERECTOMY [None]
  - DEPRESSION [None]
  - HIGH DENSITY LIPOPROTEIN DECREASED [None]
  - FEELING ABNORMAL [None]
  - DIZZINESS [None]
  - TREATMENT NONCOMPLIANCE [None]
  - FALL [None]
  - ANXIETY [None]
  - INTESTINAL HAEMORRHAGE [None]
  - LOW DENSITY LIPOPROTEIN INCREASED [None]
